FAERS Safety Report 4521844-1 (Version None)
Quarter: 2004Q4

REPORT INFORMATION
  Report Type: 
  Country: None (occurrence: None)
  Receive Date: 20041206
  Receipt Date: 20041122
  Transmission Date: 20050328
  Serious: Yes (Hospitalization)
  Sender: FDA-Public Use
  Company Number: 2004EU002097

PATIENT
  Age: 41 Year
  Sex: Male

DRUGS (3)
  1. PROGRAF [Suspect]
     Indication: LIVER TRANSPLANT
     Dates: start: 20030401
  2. ITRACONAZOLE [Suspect]
     Indication: TUBERCULOSIS
     Dates: start: 20030401
  3. AMBISOME [Suspect]
     Indication: TUBERCULOSIS
     Dates: start: 20030401

REACTIONS (5)
  - COMPLICATIONS OF TRANSPLANTED LIVER [None]
  - DRUG INTERACTION [None]
  - HEPATITIS GRANULOMATOUS [None]
  - HISTOPLASMOSIS DISSEMINATED [None]
  - NODULE [None]
